FAERS Safety Report 10059293 (Version 4)
Quarter: 2014Q2

REPORT INFORMATION
  Report Type: Spontaneous
  Country: RO (occurrence: RO)
  Receive Date: 20140404
  Receipt Date: 20140421
  Transmission Date: 20141212
  Serious: Yes (Death, Hospitalization)
  Sender: FDA-Public Use
  Company Number: RO-JNJFOC-20140402841

PATIENT
  Age: 63 Year
  Sex: Male
  Weight: 127 kg

DRUGS (8)
  1. REMICADE [Suspect]
     Indication: PSORIATIC ARTHROPATHY
     Dosage: 6 BOTTLES??TOTAL NUMBER OF INFUSIONS RECEIVED: 11
     Route: 042
     Dates: start: 20120920, end: 20131021
  2. REMICADE [Suspect]
     Indication: ARTHROPATHY
     Dosage: 6 BOTTLES??TOTAL NUMBER OF INFUSIONS RECEIVED: 11
     Route: 042
     Dates: start: 20120920, end: 20131021
  3. REMICADE [Suspect]
     Indication: PSORIASIS
     Dosage: 6 BOTTLES??TOTAL NUMBER OF INFUSIONS RECEIVED: 11
     Route: 042
     Dates: start: 20120920, end: 20131021
  4. VOLTAREN [Concomitant]
     Indication: ARTHRALGIA
     Route: 061
  5. TADOR [Concomitant]
     Indication: PSORIATIC ARTHROPATHY
     Route: 048
  6. TADOR [Concomitant]
     Indication: ARTHRALGIA
     Route: 048
  7. AULIN [Concomitant]
     Indication: PSORIATIC ARTHROPATHY
     Route: 065
  8. DIPROPHOS [Concomitant]
     Indication: PSORIATIC ARTHROPATHY
     Route: 065

REACTIONS (6)
  - Disseminated tuberculosis [Fatal]
  - Encephalitis [Fatal]
  - Pleurisy [Unknown]
  - Ascites [Unknown]
  - Malaise [Unknown]
  - Off label use [Unknown]
